FAERS Safety Report 5577945-2 (Version None)
Quarter: 2007Q4

REPORT INFORMATION
  Report Type: 
  Country: None (occurrence: None)
  Receive Date: 20071231
  Receipt Date: 20071228
  Transmission Date: 20080405
  Serious: Yes (Other)
  Sender: FDA-Public Use
  Company Number: TR-BRISTOL-MYERS SQUIBB COMPANY-13529375

PATIENT
  Age: 58 Year
  Sex: Female

DRUGS (4)
  1. ABATACEPT [Suspect]
     Indication: RHEUMATOID ARTHRITIS
     Route: 042
     Dates: start: 20040601, end: 20060925
  2. METHOTREXATE [Suspect]
     Indication: RHEUMATOID ARTHRITIS
     Dates: start: 20020518
  3. FOLIC ACID [Concomitant]
     Dates: start: 20030826
  4. LISINOPRIL [Concomitant]
     Dates: start: 20050624

REACTIONS (1)
  - CERVIX CARCINOMA [None]
